FAERS Safety Report 4596390-X (Version None)
Quarter: 2005Q1

REPORT INFORMATION
  Report Type: 
  Country: None (occurrence: None)
  Receive Date: 20050228
  Receipt Date: 20050221
  Transmission Date: 20050727
  Serious: Yes (Hospitalization)
  Sender: FDA-Public Use
  Company Number: 2005034551

PATIENT
  Age: 14 Year
  Sex: Female

DRUGS (2)
  1. UNACID INJECTION (SULBACTAM, AMPICILLIN) [Suspect]
     Indication: INFECTION PROPHYLAXIS
     Dosage: UNKNOWN (1 D), INTRAVENOUS
     Route: 042
     Dates: start: 20041201, end: 20041201
  2. UNACID PD ORAL (SULTAMICILLIN TOSILATE) [Suspect]
     Indication: INFECTION PROPHYLAXIS
     Dosage: UNKNOWN (1 D); ORAL
     Route: 048
     Dates: start: 20041201, end: 20041201

REACTIONS (3)
  - CLOSTRIDIUM COLITIS [None]
  - COLITIS ULCERATIVE [None]
  - HAEMORRHAGE [None]
